FAERS Safety Report 7906040-X (Version None)
Quarter: 2011Q4

REPORT INFORMATION
  Report Type: 
  Country: None (occurrence: None)
  Receive Date: 20111110
  Receipt Date: 20111110
  Transmission Date: 20120403
  Serious: Yes (Other)
  Sender: FDA-Public Use
  Company Number: None

PATIENT
  Age: 62 Year
  Sex: Male
  Weight: 96 kg

DRUGS (1)
  1. FENTANYL-100 [Suspect]
     Indication: PAIN
     Dosage: ONE PATCH
     Route: 062
     Dates: start: 20111007, end: 20111110

REACTIONS (2)
  - PRODUCT OUTER PACKAGING ISSUE [None]
  - DEVICE LEAKAGE [None]
